FAERS Safety Report 13156296 (Version 3)
Quarter: 2017Q1

REPORT INFORMATION
  Report Type: Spontaneous
  Country: KR (occurrence: KR)
  Receive Date: 20170126
  Receipt Date: 20170302
  Transmission Date: 20170428
  Serious: Yes (Hospitalization, Other)
  Sender: FDA-Public Use
  Company Number: KR-009507513-1701KOR011676

PATIENT
  Age: 57 Year
  Sex: Male
  Weight: 55.3 kg

DRUGS (24)
  1. LASTET [Concomitant]
     Active Substance: ETOPOSIDE
     Indication: CHEMOTHERAPY
     Dosage: 163 MG, ONCE, CYCLE 1; CONCENTRATION: 100MG/5ML (AMP)
     Route: 042
     Dates: start: 20160920, end: 20160922
  2. LASTET [Concomitant]
     Active Substance: ETOPOSIDE
     Dosage: 119 MG, ONCE, CYCLE 3; CONCENTRATION: 100MG/5ML (AMP)
     Route: 042
     Dates: start: 20161104, end: 20161106
  3. CISPLAN [Concomitant]
     Active Substance: CISPLATIN
     Dosage: 83 MG, ONCE; CYCLE 4; CONCENTRATION: 50MG/100ML
     Route: 042
     Dates: start: 20161125, end: 20161125
  4. DEXAMETHASONE SODIUM PHOSPHATE. [Concomitant]
     Active Substance: DEXAMETHASONE SODIUM PHOSPHATE
     Dosage: 10 MG, QD; CONCENTRATION: 5MG/ML
     Route: 042
     Dates: start: 20161013, end: 20161015
  5. DEXAMETHASONE SODIUM PHOSPHATE. [Concomitant]
     Active Substance: DEXAMETHASONE SODIUM PHOSPHATE
     Dosage: 10 MG, QD; CONCENTRATION: 5MG/ML
     Route: 042
     Dates: start: 20161125, end: 20161127
  6. LASIX [Concomitant]
     Active Substance: FUROSEMIDE
     Dosage: 20 MG, ONCE; CONCENTRATION: 20 MG/2 ML
     Route: 042
     Dates: start: 20161013, end: 20161013
  7. LASIX [Concomitant]
     Active Substance: FUROSEMIDE
     Dosage: 20 MG, ONCE; CONCENTRATION: 20 MG/2 ML
     Route: 042
     Dates: start: 20161125, end: 20161125
  8. EMEND (FOSAPREPITANT DIMEGLUMINE) [Suspect]
     Active Substance: FOSAPREPITANT DIMEGLUMINE
     Indication: PROPHYLAXIS OF NAUSEA AND VOMITING
     Dosage: 150 MG, ONCE
     Route: 042
     Dates: start: 20160920, end: 20160920
  9. CISPLAN [Concomitant]
     Active Substance: CISPLATIN
     Dosage: 83 MG, ONCE; CYCLE 3; CONCENTRATION: 50MG/100ML
     Route: 042
     Dates: start: 20161104, end: 20161104
  10. LASIX [Concomitant]
     Active Substance: FUROSEMIDE
     Dosage: 20 MG, ONCE; CONCENTRATION: 20 MG/2 ML
     Route: 042
     Dates: start: 20161104, end: 20161104
  11. LASTET [Concomitant]
     Active Substance: ETOPOSIDE
     Dosage: 119 MG, ONCE, CYCLE 2; CONCENTRATION: 100MG/5ML (AMP)
     Route: 042
     Dates: start: 20161013, end: 20161015
  12. CISPLAN [Concomitant]
     Active Substance: CISPLATIN
     Dosage: 83 MG, ONCE; CYCLE 2; CONCENTRATION: 50MG/100ML
     Route: 042
     Dates: start: 20161013, end: 20161013
  13. DEXAMETHASONE SODIUM PHOSPHATE. [Concomitant]
     Active Substance: DEXAMETHASONE SODIUM PHOSPHATE
     Indication: PROPHYLAXIS OF NAUSEA AND VOMITING
     Dosage: 10 MG, QD; CONCENTRATION: 5MG/ML
     Route: 042
     Dates: start: 20160920, end: 20160922
  14. DEXAMETHASONE SODIUM PHOSPHATE. [Concomitant]
     Active Substance: DEXAMETHASONE SODIUM PHOSPHATE
     Dosage: 10 MG, QD; CONCENTRATION: 5MG/ML
     Route: 042
     Dates: start: 20161104, end: 20161106
  15. ALOXI [Concomitant]
     Active Substance: PALONOSETRON HYDROCHLORIDE
     Indication: PROPHYLAXIS OF NAUSEA AND VOMITING
     Dosage: 5 ML, ONCE
     Route: 042
     Dates: start: 20160920, end: 20160920
  16. ALOXI [Concomitant]
     Active Substance: PALONOSETRON HYDROCHLORIDE
     Dosage: 5 ML, ONCE
     Route: 042
     Dates: start: 20161125, end: 20161125
  17. LASIX [Concomitant]
     Active Substance: FUROSEMIDE
     Indication: PROPHYLAXIS
     Dosage: 20 MG, ONCE; CONCENTRATION: 20 MG/2 ML
     Route: 042
     Dates: start: 20160920, end: 20160920
  18. EMEND (FOSAPREPITANT DIMEGLUMINE) [Suspect]
     Active Substance: FOSAPREPITANT DIMEGLUMINE
     Dosage: 150 MG, ONCE
     Route: 042
     Dates: start: 20161125, end: 20161125
  19. LASTET [Concomitant]
     Active Substance: ETOPOSIDE
     Dosage: 119 MG, ONCE, CYCLE 4; CONCENTRATION: 100MG/5ML (AMP)
     Route: 042
     Dates: start: 20161125, end: 20161127
  20. ALOXI [Concomitant]
     Active Substance: PALONOSETRON HYDROCHLORIDE
     Dosage: 5 ML, ONCE
     Route: 042
     Dates: start: 20161104, end: 20161104
  21. CISPLAN [Concomitant]
     Active Substance: CISPLATIN
     Indication: CHEMOTHERAPY
     Dosage: 115 MG, ONCE; CYCLE 1; CONCENTRATION: 50MG/100ML
     Route: 042
     Dates: start: 20160920, end: 20160920
  22. ALOXI [Concomitant]
     Active Substance: PALONOSETRON HYDROCHLORIDE
     Dosage: 5 ML, ONCE
     Route: 042
     Dates: start: 20161013, end: 20161013
  23. EMEND (FOSAPREPITANT DIMEGLUMINE) [Suspect]
     Active Substance: FOSAPREPITANT DIMEGLUMINE
     Dosage: 150 MG, ONCE
     Route: 042
     Dates: start: 20161013, end: 20161013
  24. EMEND (FOSAPREPITANT DIMEGLUMINE) [Suspect]
     Active Substance: FOSAPREPITANT DIMEGLUMINE
     Dosage: 150 MG, ONCE
     Route: 042
     Dates: start: 20161104, end: 20161104

REACTIONS (8)
  - Pyrexia [Recovered/Resolved]
  - Diarrhoea [Recovered/Resolved]
  - Neutropenia [Recovered/Resolved]
  - Neutropenia [Recovered/Resolved]
  - Rash [Recovered/Resolved]
  - Abdominal pain [Recovered/Resolved]
  - Diarrhoea [Recovered/Resolved]
  - Ileus [Recovered/Resolved]

NARRATIVE: CASE EVENT DATE: 20160929
